FAERS Safety Report 4693332-3 (Version None)
Quarter: 2005Q2

REPORT INFORMATION
  Report Type: 
  Country: None (occurrence: None)
  Receive Date: 20050615
  Receipt Date: 20050525
  Transmission Date: 20051028
  Serious: Yes (Hospitalization, Other)
  Sender: FDA-Public Use
  Company Number: US_0410106363

PATIENT
  Age: 41 Year
  Sex: Male
  Weight: 112 kg

DRUGS (11)
  1. ZYPREXA [Suspect]
     Indication: DEPRESSION
     Dosage: 20 MG AT BEDTIME
     Dates: start: 19980501, end: 20030925
  2. ZYPREXA [Suspect]
     Indication: SCHIZOAFFECTIVE DISORDER
     Dosage: 20 MG AT BEDTIME
     Dates: start: 19980501, end: 20030925
  3. DEPAKOTE [Concomitant]
  4. DEPAKEN (VALPROATE SEMISODIUM) [Concomitant]
  5. ZOLOFT [Concomitant]
  6. SYNTHROID [Concomitant]
  7. BECLOMETHASONE DIPROPIONATE [Concomitant]
  8. INFLUENZA VACCINE [Concomitant]
  9. WELLBUTRIN [Concomitant]
  10. PAXIL [Concomitant]
  11. MELLARIL (THIORIDAIZNE HYDROCHLORIDE) [Concomitant]

REACTIONS (23)
  - ASTHENIA [None]
  - BLOOD TRIGLYCERIDES INCREASED [None]
  - CONDITION AGGRAVATED [None]
  - CONSTIPATION [None]
  - COUGH [None]
  - DEHYDRATION [None]
  - DIABETES MELLITUS [None]
  - GINGIVITIS [None]
  - HEPATITIS C [None]
  - HERPES ZOSTER [None]
  - HYPERCHOLESTEROLAEMIA [None]
  - HYPERGLYCAEMIC HYPEROSMOLAR NONKETOTIC SYNDROME [None]
  - HYPERLIPIDAEMIA [None]
  - HYPOAESTHESIA [None]
  - HYPOTHYROIDISM [None]
  - INCREASED APPETITE [None]
  - NASAL CONGESTION [None]
  - OBESITY [None]
  - PAIN [None]
  - RASH [None]
  - TOOTHACHE [None]
  - UPPER RESPIRATORY TRACT INFECTION [None]
  - WEIGHT FLUCTUATION [None]
